FAERS Safety Report 7507643-7 (Version None)
Quarter: 2011Q2

REPORT INFORMATION
  Report Type: 
  Country: None (occurrence: None)
  Receive Date: 20110527
  Receipt Date: 20110513
  Transmission Date: 20111010
  Serious: Yes (Other)
  Sender: FDA-Public Use
  Company Number: GB-RANBAXY-2011R1-44529

PATIENT
  Age: 62 Year
  Sex: Female

DRUGS (1)
  1. AMPICILLIN SODIUM/SULBACTAM SODIUM [Suspect]
     Indication: PNEUMONIA
     Dosage: 1.2 G, UNK
     Route: 042
     Dates: start: 20110503, end: 20110505

REACTIONS (3)
  - OXYGEN SATURATION DECREASED [None]
  - RASH ERYTHEMATOUS [None]
  - WHEEZING [None]
